FAERS Safety Report 17445249 (Version 5)
Quarter: 2020Q3

REPORT INFORMATION
  Report Type: Spontaneous
  Country: US (occurrence: US)
  Receive Date: 20200221
  Receipt Date: 20200901
  Transmission Date: 20201102
  Serious: No
  Sender: FDA-Public Use
  Company Number: US-PFIZER INC-2020078414

PATIENT
  Age: 58 Year
  Sex: Female

DRUGS (1)
  1. LYRICA [Suspect]
     Active Substance: PREGABALIN
     Dosage: 375 MG, DAILY (3 TIMES A DAY AND 2 CAPS AT BEDTIME)
     Route: 048

REACTIONS (3)
  - Fall [Unknown]
  - Pain [Unknown]
  - Speech disorder [Unknown]
